FAERS Safety Report 7434838-3 (Version None)
Quarter: 2011Q2

REPORT INFORMATION
  Report Type: 
  Country: None (occurrence: None)
  Receive Date: 20110425
  Receipt Date: 20110414
  Transmission Date: 20111010
  Serious: Yes (Other)
  Sender: FDA-Public Use
  Company Number: US-JNJFOC-20110408034

PATIENT
  Age: 17 Year
  Sex: Female
  Weight: 72.58 kg

DRUGS (4)
  1. MONISTAT 7 COMBINATION PACK [Suspect]
     Route: 061
  2. MONISTAT 7 COMBINATION PACK [Suspect]
     Route: 061
  3. MONISTAT 7 COMBINATION PACK [Suspect]
     Route: 067
  4. MONISTAT 7 COMBINATION PACK [Suspect]
     Indication: FUNGAL INFECTION
     Route: 067

REACTIONS (3)
  - VULVOVAGINAL BURNING SENSATION [None]
  - VULVOVAGINAL DISCOMFORT [None]
  - VULVOVAGINAL SWELLING [None]
